FAERS Safety Report 11186271 (Version 1)
Quarter: 2015Q2

REPORT INFORMATION
  Report Type: Report from Study
  Country: JP (occurrence: JP)
  Receive Date: 20150612
  Receipt Date: 20150612
  Transmission Date: 20150821
  Serious: Yes (Hospitalization, Other)
  Sender: FDA-Public Use
  Company Number: JP-MERCK-1408JPN014666

PATIENT
  Age: 60 Year
  Sex: Male

DRUGS (5)
  1. ADALAT [Concomitant]
     Active Substance: NIFEDIPINE
     Indication: HYPERTENSION
     Dosage: 10 MG, BID; FORMULATION POR
     Route: 048
  2. EPZICOM [Concomitant]
     Active Substance: ABACAVIR SULFATE\LAMIVUDINE
     Indication: HIV INFECTION
     Dosage: 1 DOSAGE FORM, QD;DIVIDED DOSE FREQUENCY
     Route: 048
     Dates: start: 20111111
  3. ISENTRESS [Suspect]
     Active Substance: RALTEGRAVIR POTASSIUM
     Indication: HIV INFECTION
     Dosage: 800 MG, QD
     Route: 048
     Dates: start: 20111111
  4. TAKEPRON [Concomitant]
     Active Substance: LANSOPRAZOLE
     Indication: GASTROOESOPHAGEAL REFLUX DISEASE
     Dosage: 30 MG, QD; FORMUALTION XXX
     Route: 065
  5. DIOVAN [Concomitant]
     Active Substance: VALSARTAN
     Indication: HYPERTENSION
     Dosage: 80 MG, QD; FORMULATION POR
     Route: 048

REACTIONS (4)
  - Adenoma benign [Recovered/Resolved]
  - Therapeutic embolisation [Unknown]
  - Hepatocellular carcinoma [Recovering/Resolving]
  - Haemophilia [Unknown]

NARRATIVE: CASE EVENT DATE: 20130726
